FAERS Safety Report 8547052-5 (Version None)
Quarter: 2012Q3

REPORT INFORMATION
  Report Type: 
  Country: None (occurrence: None)
  Receive Date: 20120727
  Receipt Date: 20120314
  Transmission Date: 20120928
  Serious: No
  Sender: FDA-Public Use
  Company Number: US-ASTRAZENECA-2012SE17458

PATIENT
  Age: 43 Year
  Sex: Female
  Weight: 70.3 kg

DRUGS (2)
  1. SEROQUEL XR [Suspect]
     Indication: AGITATION
     Route: 048
  2. SEROQUEL XR [Suspect]
     Indication: SLEEP DISORDER
     Route: 048

REACTIONS (8)
  - DIARRHOEA [None]
  - GASTROENTERITIS VIRAL [None]
  - VOMITING [None]
  - MALAISE [None]
  - BIPOLAR DISORDER [None]
  - WEIGHT INCREASED [None]
  - OFF LABEL USE [None]
  - PSYCHOTIC DISORDER [None]
